FAERS Safety Report 11157676 (Version 2)
Quarter: 2015Q4

REPORT INFORMATION
  Report Type: Spontaneous
  Country: JP (occurrence: JP)
  Receive Date: 20150603
  Receipt Date: 20151105
  Transmission Date: 20160304
  Serious: No
  Sender: FDA-Public Use
  Company Number: JP-LUPIN PHARMACEUTICALS INC.-2015-01394

PATIENT
  Age: 75 Year
  Sex: Female
  Weight: 53 kg

DRUGS (8)
  1. PRAVASTATIN SODIUM TABLET 10 MG ^AMEL^ [Suspect]
     Active Substance: PRAVASTATIN SODIUM
     Indication: DYSLIPIDAEMIA
     Route: 048
     Dates: start: 200404, end: 201003
  2. PRAVASTATIN SODIUM TABLET 10 MG ^AMEL^ [Suspect]
     Active Substance: PRAVASTATIN SODIUM
     Route: 048
     Dates: start: 2013, end: 20130312
  3. METHYLCOBAL [Concomitant]
     Active Substance: METHYLCOBALAMIN
     Indication: HERPES ZOSTER
     Dosage: 3 TABLET OF 500MG
     Route: 048
     Dates: start: 20100406
  4. METHYLCOBAL [Concomitant]
     Active Substance: METHYLCOBALAMIN
     Indication: NEUROSIS
  5. NATRIX [Concomitant]
     Active Substance: INDAPAMIDE
     Indication: HYPERTENSION
     Dosage: 1 TABLET OF 10MG
     Route: 048
     Dates: start: 20130212
  6. PRAVASTATIN SODIUM TABLET 5 MG ^AMEL^ [Suspect]
     Active Substance: PRAVASTATIN SODIUM
     Indication: DYSLIPIDAEMIA
     Route: 048
     Dates: start: 20130917, end: 20131210
  7. MEVALOTIN [Concomitant]
     Active Substance: PRAVASTATIN SODIUM
     Indication: PRODUCT USED FOR UNKNOWN INDICATION
     Route: 065
     Dates: start: 200203
  8. JUVELA [Concomitant]
     Active Substance: .ALPHA.-TOCOPHEROL\RETINOL
     Indication: PERIPHERAL CIRCULATORY FAILURE
     Dosage: 3 TABLET OF 50MG
     Route: 048
     Dates: start: 20131210

REACTIONS (1)
  - Muscle spasms [Recovered/Resolved]

NARRATIVE: CASE EVENT DATE: 20131210
